FAERS Safety Report 4629911-9 (Version None)
Quarter: 2005Q2

REPORT INFORMATION
  Report Type: 
  Country: None (occurrence: None)
  Receive Date: 20050408
  Receipt Date: 20050329
  Transmission Date: 20051028
  Serious: Yes (Life-Threatening, Hospitalization)
  Sender: FDA-Public Use
  Company Number: US-MERCK-0503USA05077

PATIENT
  Age: 73 Year
  Sex: Male

DRUGS (3)
  1. VIOXX [Suspect]
     Route: 048
     Dates: start: 20040202
  2. [THERAPY UNSPECIFIED] [Concomitant]
     Route: 065
  3. [THERAPY UNSPECIFIED] [Concomitant]
     Route: 065

REACTIONS (2)
  - CARDIAC DISORDER [None]
  - CEREBROVASCULAR ACCIDENT [None]
